FAERS Safety Report 14721678 (Version 1)
Quarter: 2018Q2

REPORT INFORMATION
  Report Type: Spontaneous
  Country: JP (occurrence: JP)
  Receive Date: 20180405
  Receipt Date: 20180405
  Transmission Date: 20180711
  Serious: Yes (Disabling, Other)
  Sender: FDA-Public Use
  Company Number: JP-ELI_LILLY_AND_COMPANY-JP201804001735

PATIENT
  Age: 79 Year
  Sex: Female
  Weight: 51 kg

DRUGS (12)
  1. ENALAPRIL                          /00574902/ [Concomitant]
     Active Substance: ENALAPRIL
     Dosage: UNK
     Dates: start: 20171121
  2. ASPARA-CA [Concomitant]
     Active Substance: CALCIUM ASPARTATE
  3. DULOXETINE HYDROCHLORIDE. [Suspect]
     Active Substance: DULOXETINE HYDROCHLORIDE
     Indication: DEPRESSION
     Dosage: 20 MG, DAILY
     Route: 048
     Dates: start: 20180106, end: 20180113
  4. ALENDRONATE SODIUM HYDRATE [Concomitant]
     Active Substance: ALENDRONATE SODIUM
  5. MOSAPRIDE CITRATE [Concomitant]
     Active Substance: MOSAPRIDE CITRATE
     Dosage: UNK
     Dates: start: 20171113
  6. BAYASPIRIN [Concomitant]
     Active Substance: ASPIRIN
  7. CILOSTAZOL. [Concomitant]
     Active Substance: CILOSTAZOL
  8. AMLODIPINE BESILATE [Concomitant]
     Active Substance: AMLODIPINE BESYLATE
     Dosage: UNK
     Dates: start: 20171121
  9. ALFACALCIDOL [Concomitant]
     Active Substance: ALFACALCIDOL
  10. ALOSENN                            /02118001/ [Concomitant]
     Active Substance: SENNA LEAF
     Dosage: UNK
     Dates: start: 20171102
  11. BETAHISTINE MESILATE [Concomitant]
     Active Substance: BETAHISTINE MESILATE
     Dosage: UNK
     Dates: start: 20171128
  12. EBRANTIL                           /00631801/ [Concomitant]
     Active Substance: URAPIDIL
     Dosage: UNK
     Dates: start: 20171113

REACTIONS (2)
  - Cerebral infarction [Unknown]
  - Hyponatraemia [Recovered/Resolved]

NARRATIVE: CASE EVENT DATE: 20180109
